FAERS Safety Report 24167904 (Version 1)
Quarter: 2024Q3

REPORT INFORMATION
  Report Type: Spontaneous
  Country: FR (occurrence: FR)
  Receive Date: 20240802
  Receipt Date: 20240802
  Transmission Date: 20241017
  Serious: Yes (Hospitalization, Other)
  Sender: MERCK
  Company Number: FR-ORPHELIA PHARMA-202200046

PATIENT
  Age: 6 Year
  Sex: Female
  Weight: 21 kg

DRUGS (3)
  1. TEMOZOLOMIDE [Suspect]
     Active Substance: TEMOZOLOMIDE
     Indication: Malignant glioma
     Dosage: 60 MILLIGRAM, QD
     Route: 048
     Dates: start: 20220413, end: 20220719
  2. OPDIVO [Suspect]
     Active Substance: NIVOLUMAB
     Indication: Malignant glioma
     Dosage: 24 MILLIGRAM, ONCE;1STRENGTH:10 MG/ML
     Dates: start: 20220413, end: 20220427
  3. TEMOZOLOMIDE [Suspect]
     Active Substance: TEMOZOLOMIDE
     Indication: Glioma
     Dosage: 126 MILLGRAM,QD; STRENGTH: 40 MG/ML
     Route: 048
     Dates: start: 20220719, end: 20220719

REACTIONS (8)
  - Kawasaki^s disease [Recovered/Resolved]
  - Pyrexia [Recovered/Resolved]
  - Rash maculo-papular [Recovered/Resolved]
  - Chills [Recovered/Resolved]
  - Immune system disorder [Recovered/Resolved]
  - Chest pain [Recovered/Resolved]
  - Headache [Recovered/Resolved]
  - Pyrexia [Recovered/Resolved]

NARRATIVE: CASE EVENT DATE: 20220416
